FAERS Safety Report 14453990 (Version 1)
Quarter: 2018Q1

REPORT INFORMATION
  Report Type: Spontaneous
  Country: US (occurrence: US)
  Receive Date: 20180129
  Receipt Date: 20180129
  Transmission Date: 20180509
  Serious: No
  Sender: FDA-Public Use
  Company Number: US-ALLERGAN-1769993US

PATIENT
  Sex: Female

DRUGS (1)
  1. TAZAROTENE UNK [Suspect]
     Active Substance: TAZAROTENE
     Indication: ACNE

REACTIONS (3)
  - Application site pruritus [Unknown]
  - Application site papules [Unknown]
  - Application site erythema [Unknown]
